FAERS Safety Report 23088175 (Version 1)
Quarter: 2023Q4

REPORT INFORMATION
  Report Type: Report from Study
  Country: US (occurrence: US)
  Receive Date: 20231020
  Receipt Date: 20231020
  Transmission Date: 20240110
  Serious: No
  Sender: FDA-Public Use
  Company Number: US-002147023-NVSC2023US222119

PATIENT

DRUGS (2)
  1. TRIAMCINOLONE [Suspect]
     Active Substance: TRIAMCINOLONE
     Indication: Psoriasis
     Route: 065
  2. TACROLIMUS [Suspect]
     Active Substance: TACROLIMUS
     Indication: Psoriasis
     Route: 065

REACTIONS (9)
  - Psoriasis [Unknown]
  - Skin exfoliation [Unknown]
  - Hidradenitis [Unknown]
  - Pustule [Unknown]
  - Nodule [Unknown]
  - Dermatitis psoriasiform [Unknown]
  - Guttate psoriasis [Unknown]
  - Rash [Unknown]
  - Drug ineffective [Unknown]
